FAERS Safety Report 5347479-9 (Version None)
Quarter: 2007Q2

REPORT INFORMATION
  Report Type: 
  Country: None (occurrence: None)
  Receive Date: 20070604
  Receipt Date: 20070604
  Transmission Date: 20071010
  Serious: Yes (Other)
  Sender: FDA-Public Use
  Company Number: None

PATIENT
  Age: 58 Year
  Sex: Female
  Weight: 49.8957 kg

DRUGS (9)
  1. FORTEO [Suspect]
     Indication: OSTEOPOROSIS
     Dosage: 20UG ONCE DAILY SQ
     Route: 058
     Dates: start: 20070415, end: 20070515
  2. FORTEO [Suspect]
     Indication: PATHOLOGICAL FRACTURE
     Dosage: 20UG ONCE DAILY SQ
     Route: 058
     Dates: start: 20070415, end: 20070515
  3. FORTEO [Suspect]
     Indication: OSTEOPOROSIS
     Dosage: 20UG ONCE DAILY SQ
     Route: 058
     Dates: start: 20070530, end: 20070604
  4. FORTEO [Suspect]
     Indication: PATHOLOGICAL FRACTURE
     Dosage: 20UG ONCE DAILY SQ
     Route: 058
     Dates: start: 20070530, end: 20070604
  5. SYNTHROID [Concomitant]
  6. THYROID TAB [Concomitant]
  7. TYLENOL W/ CODEINE NO. 3 [Concomitant]
  8. WELLBUTRIN [Concomitant]
  9. TEGRETOL [Concomitant]

REACTIONS (5)
  - ASTHENIA [None]
  - BLOOD ALKALINE PHOSPHATASE INCREASED [None]
  - DEPRESSION SUICIDAL [None]
  - LABORATORY TEST ABNORMAL [None]
  - MOOD ALTERED [None]
